FAERS Safety Report 12873632 (Version 2)
Quarter: 2016Q4

REPORT INFORMATION
  Report Type: Spontaneous
  Country: US (occurrence: US)
  Receive Date: 20161021
  Receipt Date: 20161111
  Transmission Date: 20170207
  Serious: Yes (Other)
  Sender: FDA-Public Use
  Company Number: US-PFIZER INC-2016492289

PATIENT
  Age: 37 Year
  Sex: Female

DRUGS (1)
  1. METHOTREXATE SODIUM. [Suspect]
     Active Substance: METHOTREXATE SODIUM
     Dosage: 80 MG, WEEKLY
     Route: 042

REACTIONS (7)
  - Demyelination [Unknown]
  - Neurotoxicity [Unknown]
  - Dysphagia [Recovering/Resolving]
  - Dysarthria [Not Recovered/Not Resolved]
  - Toxicity to various agents [Unknown]
  - Myopathy [Not Recovered/Not Resolved]
  - Peripheral sensory neuropathy [Unknown]
